FAERS Safety Report 16009693 (Version 3)
Quarter: 2019Q2

REPORT INFORMATION
  Report Type: Spontaneous
  Country: US (occurrence: US)
  Receive Date: 20190227
  Receipt Date: 20190613
  Transmission Date: 20190711
  Serious: Yes (Hospitalization)
  Sender: FDA-Public Use
  Company Number: US-SA-2019SA049822

PATIENT
  Age: 55 Year
  Sex: Female

DRUGS (4)
  1. CYMBALTA [Concomitant]
     Active Substance: DULOXETINE HYDROCHLORIDE
  2. SYNTHROID [Concomitant]
     Active Substance: LEVOTHYROXINE SODIUM
  3. GEODON [ZIPRASIDONE HYDROCHLORIDE] [Concomitant]
  4. DUPIXENT [Suspect]
     Active Substance: DUPILUMAB
     Indication: PSORIASIS
     Dosage: 300 MG, QOW
     Route: 058
     Dates: start: 20190109

REACTIONS (6)
  - Condition aggravated [Unknown]
  - Blood glucose decreased [Unknown]
  - Asthenia [Unknown]
  - Tremor [Unknown]
  - Product use in unapproved indication [Unknown]
  - Viral infection [Unknown]

NARRATIVE: CASE EVENT DATE: 20190109
